FAERS Safety Report 7580591 (Version 10)
Quarter: 2012Q4

REPORT INFORMATION
  Report Type: 
  Country: US (occurrence: US)
  Receive Date: 20100910
  Receipt Date: 20121226
  Transmission Date: 20130627
  Serious: Yes (Life-Threatening, Hospitalization, Congenital Anomaly, Other)
  Sender: FDA-Public Use
  Company Number: US-PFIZER INC-2010109648

PATIENT
  Sex: Male
  Weight: 4 kg

DRUGS (6)
  1. ZOLOFT [Suspect]
     Dosage: 25 mg, 1x/day
     Route: 064
     Dates: start: 20031202, end: 200508
  2. PRENATAL VITAMINS [Concomitant]
     Dosage: UNK
     Route: 064
     Dates: start: 20050901
  3. AMOXICILLIN [Concomitant]
     Indication: COLD
     Dosage: UNK
     Route: 064
     Dates: start: 20060120
  4. GUAIFENESIN [Concomitant]
     Indication: COLD
     Dosage: UNK
     Route: 064
     Dates: start: 20060120
  5. TYLENOL [Concomitant]
     Indication: FLU LIKE SYMPTOMS
     Dosage: as needed
     Route: 064
     Dates: start: 20060406
  6. EXCEDRIN (ASPIRIN/CAFFEINE/PARACETAMOL) [Concomitant]
     Dosage: UNK
     Route: 064

REACTIONS (24)
  - Maternal exposure timing unspecified [Unknown]
  - Congenital anomaly [Unknown]
  - Neonatal respiratory distress syndrome [Unknown]
  - Shone complex [Unknown]
  - Ventricular septal defect [Recovered/Resolved]
  - Congenital coronary artery malformation [Recovered/Resolved]
  - Renal failure [Recovered/Resolved]
  - Coarctation of the aorta [Unknown]
  - Supraventricular tachycardia [Unknown]
  - Developmental delay [Unknown]
  - Aorta hypoplasia [Unknown]
  - Left ventricular failure [Unknown]
  - Aortic valve incompetence [Unknown]
  - Tricuspid valve incompetence [Unknown]
  - Patent ductus arteriosus [Unknown]
  - Cardiac failure congestive [Unknown]
  - Pulmonary oedema neonatal [Unknown]
  - Atelectasis neonatal [Unknown]
  - Pneumothorax [Unknown]
  - Mitral valve disease [Unknown]
  - Aortic valve sclerosis [Unknown]
  - Atrial septal defect [Unknown]
  - Bacterial tracheitis [Unknown]
  - Right ventricular hypertrophy [Unknown]
